FAERS Safety Report 20633299 (Version 1)
Quarter: 2022Q1

REPORT INFORMATION
  Report Type: Spontaneous
  Country: IN (occurrence: IN)
  Receive Date: 20220324
  Receipt Date: 20220324
  Transmission Date: 20220423
  Serious: Yes (Hospitalization, Other)
  Sender: FDA-Public Use
  Company Number: IN-BIOVITRUM-2022IN04261

PATIENT
  Sex: Male

DRUGS (1)
  1. NITISINONE [Suspect]
     Active Substance: NITISINONE
     Indication: Tyrosinaemia

REACTIONS (4)
  - Seizure [Unknown]
  - Abdominal pain [Unknown]
  - Product availability issue [Unknown]
  - Product dose omission issue [Unknown]
